FAERS Safety Report 7261662-7 (Version None)
Quarter: 2011Q1

REPORT INFORMATION
  Report Type: 
  Country: None (occurrence: None)
  Receive Date: 20110130
  Receipt Date: 20101215
  Transmission Date: 20110831
  Serious: No
  Sender: FDA-Public Use
  Company Number: US-ABBOTT-10P-163-0683046-00

PATIENT
  Sex: Female
  Weight: 90.8 kg

DRUGS (5)
  1. HUMIRA [Suspect]
     Indication: PSORIASIS
     Route: 058
     Dates: start: 20101015
  2. ALPHAGAN [Concomitant]
     Indication: GLAUCOMA
  3. METOPROLOL [Concomitant]
     Indication: BLOOD PRESSURE
     Dates: start: 20090101
  4. COSOPT [Concomitant]
     Indication: GLAUCOMA
  5. TRAVITAN-Z [Concomitant]
     Indication: GLAUCOMA

REACTIONS (7)
  - RASH MACULAR [None]
  - URTICARIA [None]
  - PSORIASIS [None]
  - PRURITUS [None]
  - SKIN HAEMORRHAGE [None]
  - RASH [None]
  - SKIN FISSURES [None]
